FAERS Safety Report 6779517-0 (Version None)
Quarter: 2010Q2

REPORT INFORMATION
  Report Type: 
  Country: None (occurrence: None)
  Receive Date: 20100618
  Receipt Date: 20100603
  Transmission Date: 20101027
  Serious: Yes (Hospitalization, Other)
  Sender: FDA-Public Use
  Company Number: GB-B.I. PHARMACEUTICALS,INC./RIDGEFIELD-2009-UK-00874UK

PATIENT
  Sex: Female
  Weight: 39.3 kg

DRUGS (23)
  1. CATAPRES AMPOULES (0015/5008R) [Suspect]
     Indication: PAIN
     Dosage: 159.87 MCG/ML
     Route: 037
     Dates: start: 20090422
  2. BUPIVACAINE HCL [Suspect]
     Indication: PAIN
     Dosage: 11.990 MG/ML
     Route: 037
     Dates: start: 20090422
  3. HYDROMORPHONE [Suspect]
     Indication: PAIN
     Dosage: 7.993MG/ML
     Route: 037
     Dates: start: 20090422
  4. FLUOXETINE [Concomitant]
     Indication: DEPRESSION
     Dosage: 20 MG
     Route: 048
     Dates: start: 20010101
  5. AMITRIPTYLINE [Concomitant]
     Indication: PAIN
     Dosage: 10 MG
     Route: 048
     Dates: start: 19840101
  6. ONDANSETRON [Concomitant]
     Indication: NAUSEA
     Dosage: 16 MG
     Route: 048
     Dates: start: 19960101
  7. CODEINE PHOSPHATE [Concomitant]
     Indication: PAIN
     Dosage: 120 MG
     Route: 048
     Dates: start: 19970101
  8. CHLORPHENAMINE [Concomitant]
     Indication: HYPERSENSITIVITY
     Dosage: 12 MG
     Route: 048
     Dates: start: 19961001
  9. DOCUSATE [Concomitant]
     Indication: LAXATIVE SUPPORTIVE CARE
     Dosage: 200 MG
     Route: 048
     Dates: start: 19960101
  10. FOLIC ACID [Concomitant]
     Indication: ANAEMIA
     Dosage: 5 MG
     Route: 048
     Dates: start: 20010101
  11. TIOTROPIUM [Concomitant]
     Indication: ASTHMA
     Dosage: 18 MCG
     Route: 055
     Dates: start: 19870101
  12. GABAPENTIN [Concomitant]
     Indication: PAIN
     Dosage: 300 MG
     Route: 048
     Dates: start: 20060101
  13. DICLOFENAC SODIUM [Concomitant]
     Indication: PAIN
     Dosage: 150 MG
     Route: 048
     Dates: start: 20060101
  14. QUININE SULFATE [Concomitant]
     Indication: MUSCLE SPASMS
     Dosage: 200 MG
     Route: 048
     Dates: start: 19970101
  15. LANSOPRAZOLE [Concomitant]
     Indication: GASTROOESOPHAGEAL REFLUX DISEASE
     Dosage: 30 MG
     Route: 048
     Dates: start: 19960701
  16. SUCRALFATE [Concomitant]
     Indication: GASTRITIS PROPHYLAXIS
     Dosage: 4 G
     Route: 048
     Dates: start: 19940101
  17. ORAMORPH SR [Concomitant]
     Indication: PAIN
     Dosage: 5ML (10MG) PRN
     Route: 048
     Dates: start: 20000101
  18. SALBUTAMOL [Concomitant]
     Indication: ASTHMA
     Dosage: 100MG PRN
     Route: 055
     Dates: start: 19870101
  19. CYCLIZINE [Concomitant]
     Indication: NAUSEA
     Dosage: 150 MG
     Route: 048
     Dates: start: 20010101
  20. CLOTRIMAZOLE [Concomitant]
     Indication: SKIN INFECTION
     Dosage: 5G PRN
     Route: 061
     Dates: start: 19970101
  21. FUROSEMIDE [Concomitant]
     Indication: DIURETIC THERAPY
     Dosage: 80 MG
     Route: 048
     Dates: start: 19970101
  22. BUCLESONIDE POWDER INHALER [Concomitant]
     Indication: ASTHMA
     Dosage: 100MG PRN
     Route: 055
     Dates: start: 19870101
  23. HYDROXOCOBALOMIN [Concomitant]
     Indication: ANAEMIA
     Dosage: 1MG (3 MONTHLY)
     Route: 055
     Dates: start: 20060101

REACTIONS (4)
  - DEVICE RELATED INFECTION [None]
  - MALNUTRITION [None]
  - PNEUMONIA [None]
  - WEIGHT DECREASED [None]
